FAERS Safety Report 4262309-4 (Version None)
Quarter: 2004Q1

REPORT INFORMATION
  Report Type: 
  Country: None (occurrence: None)
  Receive Date: 20040102
  Receipt Date: 20031203
  Transmission Date: 20041129
  Serious: Yes (Death)
  Sender: FDA-Public Use
  Company Number: PHBS2003JP13558

PATIENT
  Age: 4 Year
  Sex: Female
  Weight: 18 kg

DRUGS (6)
  1. SANDIMMUNE [Suspect]
     Indication: STEM CELL TRANSPLANT
     Route: 048
     Dates: start: 20031119, end: 20031130
  2. FLUDARABINE PHOSPHATE [Concomitant]
     Dosage: 22 MG/D
     Route: 042
     Dates: start: 20031114, end: 20031118
  3. THIOTEPA [Concomitant]
     Dosage: 180 MG/D
     Route: 042
     Dates: start: 20031115, end: 20031115
  4. THIOTEPA [Concomitant]
     Dosage: 45 MG/D
     Route: 042
     Dates: start: 20031116, end: 20031119
  5. LASIX                                   /SCH/ [Concomitant]
     Dosage: 20 MF/D
     Route: 042
     Dates: start: 20031127, end: 20031130
  6. MORPHINE [Concomitant]
     Dosage: 10 MG/D
     Route: 042
     Dates: start: 20031129, end: 20031130

REACTIONS (10)
  - ABDOMINAL PAIN [None]
  - BLOOD PRESSURE DECREASED [None]
  - CARDIAC ARREST [None]
  - LIFE SUPPORT [None]
  - MULTI-ORGAN FAILURE [None]
  - NEUTROPENIC INFECTION [None]
  - PYREXIA [None]
  - SHOCK [None]
  - SKIN DISCOLOURATION [None]
  - SYSTEMIC INFLAMMATORY RESPONSE SYNDROME [None]
